FAERS Safety Report 9419664 (Version 1)
Quarter: 2013Q3

REPORT INFORMATION
  Report Type: Spontaneous
  Country: US (occurrence: US)
  Receive Date: 20130725
  Receipt Date: 20130725
  Transmission Date: 20140515
  Serious: Yes (Other)
  Sender: FDA-Public Use
  Company Number: PHEH2013US015623

PATIENT
  Sex: Male

DRUGS (6)
  1. FOCALIN XR [Suspect]
     Dosage: 15 MG, QD
     Dates: start: 20130619
  2. FOCALIN [Suspect]
     Dosage: 5 MG, QD
     Dates: start: 20130622
  3. GUANFACINE [Concomitant]
     Dosage: 1 MG, TWICE DAILY
  4. HYDROXYZINE [Concomitant]
     Dosage: 20MG/30MG TWICE DAILY
  5. FLUTICASONE [Concomitant]
     Dosage: 2 PUFFS TWICE DAILY
  6. ALBUTEROL [Concomitant]
     Dosage: UNK UKN, UNK

REACTIONS (2)
  - Asthma [Unknown]
  - Hypersensitivity [Unknown]
